FAERS Safety Report 24936032 (Version 3)
Quarter: 2025Q3

REPORT INFORMATION
  Report Type: Report from Study
  Country: US (occurrence: US)
  Receive Date: 20250206
  Receipt Date: 20250725
  Transmission Date: 20251021
  Serious: No
  Sender: SUNOVION
  Company Number: US-SMPA-2025SPA000963

PATIENT

DRUGS (2)
  1. ORGOVYX [Suspect]
     Active Substance: RELUGOLIX
     Indication: Prostate cancer
     Dosage: 360 MG, SINGLE
     Route: 048
     Dates: start: 20240215, end: 20240215
  2. ORGOVYX [Suspect]
     Active Substance: RELUGOLIX
     Dosage: 120 MG, QD
     Route: 048
     Dates: start: 20240216

REACTIONS (6)
  - Blood pressure abnormal [Unknown]
  - Anxiety [Unknown]
  - Blood pressure increased [Unknown]
  - Fatigue [Unknown]
  - Depression [Unknown]
  - Arthralgia [Unknown]
